FAERS Safety Report 5985059-2 (Version None)
Quarter: 2008Q4

REPORT INFORMATION
  Report Type: 
  Country: None (occurrence: None)
  Receive Date: 20081208
  Receipt Date: 20080313
  Transmission Date: 20090506
  Serious: No
  Sender: FDA-Public Use
  Company Number: US-AMGEN-KDL269296

PATIENT
  Sex: Male
  Weight: 114.4 kg

DRUGS (9)
  1. ENBREL [Suspect]
     Indication: RHEUMATOID ARTHRITIS
     Route: 058
     Dates: start: 20070213, end: 20070423
  2. METHOTREXATE [Concomitant]
     Route: 048
     Dates: start: 20060215
  3. FOLIC ACID [Concomitant]
     Dates: start: 20060215
  4. METHADONE HCL [Concomitant]
  5. ALPRAZOLAM [Concomitant]
  6. CREON [Concomitant]
  7. LORTAB [Concomitant]
  8. TRAZODONE HCL [Concomitant]
  9. PHENERGAN HCL [Concomitant]

REACTIONS (4)
  - ARTHRALGIA [None]
  - DRUG INEFFECTIVE [None]
  - HEPATIC ENZYME INCREASED [None]
  - JOINT STIFFNESS [None]
